FAERS Safety Report 8468111 (Version 5)
Quarter: 2013Q4

REPORT INFORMATION
  Report Type: Spontaneous
  Country: TR (occurrence: TR)
  Receive Date: 20120320
  Receipt Date: 20131205
  Transmission Date: 20140711
  Serious: Yes (Other)
  Sender: FDA-Public Use
  Company Number: TR-AMGEN-TURSP2012015455

PATIENT
  Age: 56 Year
  Sex: Male

DRUGS (3)
  1. ENBREL [Suspect]
     Indication: ANKYLOSING SPONDYLITIS
     Dosage: 25 MG, 2X/WEEK
     Route: 058
     Dates: start: 200909, end: 20110907
  2. ENBREL [Suspect]
     Dosage: 50 MG, WEEKLY
     Route: 058
     Dates: start: 20110907, end: 20111226
  3. ENBREL [Suspect]
     Dosage: 25 MG, 2X/WEEK
     Route: 058
     Dates: start: 201207

REACTIONS (5)
  - Neoplasm malignant [Recovering/Resolving]
  - Mental disorder [Not Recovered/Not Resolved]
  - Tension [Recovered/Resolved]
  - Muscle spasms [Recovered/Resolved]
  - Injection site pain [Not Recovered/Not Resolved]
